FAERS Safety Report 5018968-1 (Version None)
Quarter: 2006Q2

REPORT INFORMATION
  Report Type: 
  Country: None (occurrence: None)
  Receive Date: 20060531
  Receipt Date: 20060523
  Transmission Date: 20061013
  Serious: Yes (Hospitalization)
  Sender: FDA-Public Use
  Company Number: WAES 0604USA00518

PATIENT
  Age: 53 Year
  Sex: Male
  Weight: 95.709 kg

DRUGS (3)
  1. ZETIA [Suspect]
     Dosage: PO
     Route: 048
  2. BLINDED THERAPY UNK [Suspect]
     Indication: PROSTATE CANCER
     Dosage: DAILY/PO
     Route: 048
     Dates: start: 20030916, end: 20060406
  3. ATORVASTATIN CALCIUM [Concomitant]

REACTIONS (8)
  - ABDOMINAL DISTENSION [None]
  - BILE DUCT OBSTRUCTION [None]
  - CHOLELITHIASIS [None]
  - CONSTIPATION [None]
  - HEPATIC STEATOSIS [None]
  - PANCREATIC DUCT DILATATION [None]
  - PANCREATIC PSEUDOCYST [None]
  - PANCREATITIS CHRONIC [None]
